FAERS Safety Report 6894325-8 (Version None)
Quarter: 2010Q3

REPORT INFORMATION
  Report Type: 
  Country: None (occurrence: None)
  Receive Date: 20100802
  Receipt Date: 20100719
  Transmission Date: 20110219
  Serious: No
  Sender: FDA-Public Use
  Company Number: US-B.I. PHARMACEUTICALS,INC./RIDGEFIELD-2010-BP-08163BP

PATIENT
  Age: 52 Year
  Sex: Female

DRUGS (1)
  1. MOBIC [Suspect]

REACTIONS (3)
  - CHILLS [None]
  - DRY MOUTH [None]
  - HYPERSENSITIVITY [None]
